FAERS Safety Report 10149836 (Version 1)
Quarter: 2014Q2

REPORT INFORMATION
  Report Type: Spontaneous
  Country: US (occurrence: None)
  Receive Date: 20140501
  Receipt Date: 20140501
  Transmission Date: 20141212
  Serious: No
  Sender: FDA-Public Use
  Company Number: None

PATIENT
  Age: 85 Year
  Sex: Female
  Weight: 78.02 kg

DRUGS (12)
  1. SCOPOLAMINE PATCH [Suspect]
     Indication: VERTIGO
     Dosage: 1 Q 3 DAYS
     Dates: end: 20140331
  2. ALDACTONE [Concomitant]
  3. BUMETADINE [Concomitant]
  4. INSULIN PEN [Concomitant]
  5. INDEROL [Concomitant]
  6. AMLODIPINE [Concomitant]
  7. POTASSIUM CHLORIDE [Concomitant]
  8. COUMADIN [Concomitant]
  9. MAG. 64 [Concomitant]
  10. ISORBIDE [Concomitant]
  11. NITROFURANTOIN [Concomitant]
  12. CLOPIDOGREL [Concomitant]

REACTIONS (5)
  - Memory impairment [None]
  - Visual impairment [None]
  - Dysphonia [None]
  - Throat irritation [None]
  - Cough [None]
